FAERS Safety Report 5758017-0 (Version None)
Quarter: 2008Q2

REPORT INFORMATION
  Report Type: 
  Country: None (occurrence: None)
  Receive Date: 20080602
  Receipt Date: 20080602
  Transmission Date: 20081010
  Serious: Yes (Other)
  Sender: FDA-Public Use
  Company Number: None

PATIENT
  Age: 55 Year
  Sex: Male
  Weight: 68.0396 kg

DRUGS (1)
  1. LARIAM [Suspect]
     Indication: MALARIA PROPHYLAXIS
     Dosage: 250 MG  WEEKLY PO
     Route: 048
     Dates: start: 20071116, end: 20080428

REACTIONS (3)
  - AGGRESSION [None]
  - INSOMNIA [None]
  - WEIGHT DECREASED [None]
